FAERS Safety Report 13527207 (Version 2)
Quarter: 2017Q2

REPORT INFORMATION
  Report Type: Report from Study
  Country: GT (occurrence: GT)
  Receive Date: 20170509
  Receipt Date: 20170530
  Transmission Date: 20170830
  Serious: No
  Sender: FDA-Public Use
  Company Number: PHHY2017GT067049

PATIENT
  Sex: Male
  Weight: 62.59 kg

DRUGS (1)
  1. AFINITOR [Suspect]
     Active Substance: EVEROLIMUS
     Indication: LUNG CANCER METASTATIC
     Dosage: 10 MG, UNK
     Route: 065
     Dates: start: 201705

REACTIONS (1)
  - Communication disorder [Unknown]
